FAERS Safety Report 6837799-0 (Version None)
Quarter: 2010Q3

REPORT INFORMATION
  Report Type: 
  Country: None (occurrence: None)
  Receive Date: 20100709
  Receipt Date: 20100622
  Transmission Date: 20110219
  Serious: Yes (Other)
  Sender: FDA-Public Use
  Company Number: GB-ACCORD-005538

PATIENT
  Age: 14 Year
  Sex: Female

DRUGS (3)
  1. MYCOPHENOLATE MOFETIL [Suspect]
     Indication: AUTOIMMUNE HEPATITIS
  2. PREDNISOLONE [Suspect]
     Indication: AUTOIMMUNE HEPATITIS
  3. RITUXIMAB (RITUXIMAB) [Suspect]
     Indication: THROMBOTIC THROMBOCYTOPENIC PURPURA
     Dosage: 375.00-MG/M2-1.00 PER-4.0 WEEKS

REACTIONS (4)
  - OFF LABEL USE [None]
  - SERUM SICKNESS [None]
  - THROMBOTIC THROMBOCYTOPENIC PURPURA [None]
  - TROPONIN T INCREASED [None]
